FAERS Safety Report 8551889-6 (Version None)
Quarter: 2012Q3

REPORT INFORMATION
  Report Type: 
  Country: None (occurrence: None)
  Receive Date: 20120730
  Receipt Date: 20120724
  Transmission Date: 20120928
  Serious: Yes (Hospitalization)
  Sender: FDA-Public Use
  Company Number: PHHO2012US007487

PATIENT
  Sex: Female
  Weight: 54 kg

DRUGS (24)
  1. LDE 225 [Suspect]
     Dosage: 200 MG, QD
     Route: 048
     Dates: start: 20120605, end: 20120626
  2. REGLAN [Concomitant]
  3. ZOFRAN [Concomitant]
  4. LDE 225 [Suspect]
     Dosage: 200 MG, QD
     Route: 048
     Dates: start: 20120628, end: 20120713
  5. CELEXA [Concomitant]
  6. MIRALAX [Concomitant]
  7. OXALIPLATIN [Suspect]
     Indication: PANCREATIC CARCINOMA METASTATIC
     Dosage: 65 MG/M2, QW2
     Route: 042
     Dates: start: 20120424, end: 20120705
  8. FISH OIL [Concomitant]
  9. VITAMIN D [Concomitant]
  10. LOMOTIL [Concomitant]
  11. CREON [Concomitant]
  12. DILAUDID [Concomitant]
  13. IRINOTECAN HYDROCHLORIDE [Suspect]
     Indication: PANCREATIC CARCINOMA METASTATIC
     Dosage: 150 MG/M2, QW2
     Route: 042
     Dates: start: 20120424, end: 20120705
  14. EMEND [Concomitant]
  15. IMODIUM [Concomitant]
  16. OXYCODONE HCL [Concomitant]
  17. FLUOROURACIL [Suspect]
     Indication: PANCREATIC CARCINOMA METASTATIC
     Dosage: 1200 MG/M2 X 46 HOURS, QW2
     Route: 042
     Dates: start: 20120424, end: 20120705
  18. LEUCOVORIN CALCIUM [Suspect]
     Indication: PANCREATIC CARCINOMA METASTATIC
     Dosage: 400 MG/M2, QW2
     Route: 042
     Dates: start: 20120424, end: 20120705
  19. DECADRON [Concomitant]
  20. ESTROGENS [Concomitant]
  21. OMEPRAZOLE [Concomitant]
  22. LDE 225 [Suspect]
     Indication: ADENOCARCINOMA PANCREAS
     Dosage: 200 MG, QD
     Route: 048
     Dates: start: 20120424, end: 20120512
  23. ATIVAN [Concomitant]
  24. COMPAZINE [Concomitant]

REACTIONS (5)
  - CHOLECYSTITIS ACUTE [None]
  - NAUSEA [None]
  - DIARRHOEA [None]
  - PANCREATITIS [None]
  - CHOLANGITIS [None]
